FAERS Safety Report 6657096-6 (Version None)
Quarter: 2010Q1

REPORT INFORMATION
  Report Type: 
  Country: None (occurrence: None)
  Receive Date: 20100330
  Receipt Date: 20100319
  Transmission Date: 20100710
  Serious: Yes (Other)
  Sender: FDA-Public Use
  Company Number: US-JNJFOC-20100306663

PATIENT
  Age: 50 Year
  Sex: Male

DRUGS (6)
  1. FLEXERIL [Suspect]
     Indication: DRUG USE FOR UNKNOWN INDICATION
  2. VALIUM [Interacting]
     Indication: DRUG USE FOR UNKNOWN INDICATION
  3. DILAUDID [Interacting]
     Indication: DRUG USE FOR UNKNOWN INDICATION
  4. SKELAXIN [Interacting]
     Indication: DRUG USE FOR UNKNOWN INDICATION
  5. PERCOCET [Interacting]
     Indication: DRUG USE FOR UNKNOWN INDICATION
  6. LYRICA [Interacting]
     Indication: DRUG USE FOR UNKNOWN INDICATION

REACTIONS (2)
  - COMA [None]
  - DRUG INTERACTION [None]
